FAERS Safety Report 11759611 (Version 1)
Quarter: 2015Q4

REPORT INFORMATION
  Report Type: Spontaneous
  Country: US (occurrence: US)
  Receive Date: 20151120
  Receipt Date: 20151120
  Transmission Date: 20160304
  Serious: No
  Sender: FDA-Public Use
  Company Number: US-JNJFOC-20151021105

PATIENT
  Age: 59 Year
  Sex: Female
  Weight: 67.13 kg

DRUGS (4)
  1. WOMENS ROGAINE UNSCENTED [Suspect]
     Active Substance: MINOXIDIL
     Route: 061
  2. WOMENS ROGAINE UNSCENTED [Suspect]
     Active Substance: MINOXIDIL
     Indication: ALOPECIA
     Dosage: A CAPFUL OR MORE
     Route: 061
     Dates: end: 20151025
  3. DRUGS USED IN DIABETES [Concomitant]
     Active Substance: UNSPECIFIED INGREDIENT
     Indication: DIABETES MELLITUS
     Route: 065
  4. ANTIDEPRESSANTS [Concomitant]
     Active Substance: UNSPECIFIED INGREDIENT
     Indication: DEPRESSION
     Route: 065

REACTIONS (5)
  - Alopecia [Not Recovered/Not Resolved]
  - Overdose [Unknown]
  - Drug effect decreased [Unknown]
  - Pruritus [Not Recovered/Not Resolved]
  - Product formulation issue [Unknown]

NARRATIVE: CASE EVENT DATE: 20151014
